FAERS Safety Report 16728693 (Version 5)
Quarter: 2019Q3

REPORT INFORMATION
  Report Type: Report from Study
  Country: US (occurrence: US)
  Receive Date: 20190822
  Receipt Date: 20190923
  Transmission Date: 20191005
  Serious: Yes (Hospitalization)
  Sender: FDA-Public Use
  Company Number: US-TESAROUBC-2019-TSO02404-US

PATIENT
  Age: 76 Year
  Sex: Female
  Weight: 68.5 kg

DRUGS (31)
  1. ATEZOLIZUMAB. [Suspect]
     Active Substance: ATEZOLIZUMAB
     Dosage: 840 MG, 1 IN 2 WK
     Route: 042
     Dates: start: 20190529
  2. KLONOPIN [Concomitant]
     Active Substance: CLONAZEPAM
  3. LIPITOR [Concomitant]
     Active Substance: ATORVASTATIN CALCIUM
     Dosage: 20 MG, QD
     Route: 048
     Dates: start: 2018
  4. ZOFRAN [Concomitant]
     Active Substance: ONDANSETRON HYDROCHLORIDE
     Dosage: (8 MG,3 IN 1 D)
     Route: 048
     Dates: start: 20190501
  5. MYCOLOG-II [Concomitant]
     Active Substance: NYSTATIN\TRIAMCINOLONE ACETONIDE
     Dosage: 100000-0.1 UNIT/GM-% (0.1 %,2 IN 1 D)
     Route: 061
     Dates: start: 20190522, end: 20190528
  6. NYSTOP [Concomitant]
     Active Substance: NYSTATIN
     Dosage: 100000 UNIT/GM POWDER
     Route: 061
     Dates: start: 20190814
  7. NIRAPARIB [Suspect]
     Active Substance: NIRAPARIB
     Dosage: 200 MG, QD
     Route: 048
     Dates: start: 20190619
  8. VITAMIN D3 [Concomitant]
     Active Substance: CHOLECALCIFEROL
     Dosage: 1000 UNITS, QD
     Route: 048
     Dates: start: 2015
  9. TEMOVATE [Concomitant]
     Active Substance: CLOBETASOL PROPIONATE
     Dosage: 1 IN 1 PRN
     Route: 061
     Dates: start: 20190618, end: 20190624
  10. LANTUS [Concomitant]
     Active Substance: INSULIN GLARGINE
     Dosage: 1 IN 1 D
     Route: 058
     Dates: start: 20190624, end: 20190624
  11. ATEZOLIZUMAB. [Suspect]
     Active Substance: ATEZOLIZUMAB
     Dosage: 840 MG, ON DAYS 1 AND 15 (+/-3 DAYS) OF EACH 28-DAY CYCLE
     Route: 042
     Dates: start: 20190501
  12. AMARYL [Concomitant]
     Active Substance: GLIMEPIRIDE
     Dosage: UNK
     Route: 048
     Dates: start: 2009, end: 20190627
  13. KLONOPIN [Concomitant]
     Active Substance: CLONAZEPAM
     Dosage: 0.5 MG, BID
     Route: 048
     Dates: start: 1994
  14. GABAPENTIN. [Concomitant]
     Active Substance: GABAPENTIN
     Dosage: 300 MG, 2 IN 1 D
     Route: 048
     Dates: start: 20190621, end: 20190624
  15. XYZAL [Concomitant]
     Active Substance: LEVOCETIRIZINE DIHYDROCHLORIDE
     Dosage: 5 MG, 1 IN 1 D
     Route: 048
     Dates: start: 20190621
  16. COBIMETINIB. [Suspect]
     Active Substance: COBIMETINIB
     Dosage: 60 MG, ON DAYS 1-21 OF EACH 28-DAY CYCLE
     Route: 048
     Dates: start: 20190501
  17. COBIMETINIB. [Suspect]
     Active Substance: COBIMETINIB
     Dosage: 60 MG, 1 IN 1 D
     Route: 048
     Dates: start: 20190618
  18. LEXAPRO [Concomitant]
     Active Substance: ESCITALOPRAM OXALATE
  19. NYSTOP [Concomitant]
     Active Substance: NYSTATIN
     Dosage: 100000 UNIT/GM POWDER (3 IN 1 D)
     Route: 061
     Dates: start: 20190612
  20. TRIAMCINOLONE [Concomitant]
     Active Substance: TRIAMCINOLONE
     Dosage: 4  IN 1 D
     Route: 061
     Dates: start: 20190620
  21. HUMALOG [Concomitant]
     Active Substance: INSULIN LISPRO
     Dosage: 105 UNITS
     Route: 058
     Dates: start: 20190624, end: 20190627
  22. JANUMET [Concomitant]
     Active Substance: METFORMIN HYDROCHLORIDE\SITAGLIPTIN PHOSPHATE
     Dosage: 2000 MG, QD
     Route: 048
     Dates: start: 2009, end: 20190627
  23. NAPHAZOLINE/PHENIRAMINE [Concomitant]
     Active Substance: NAPHAZOLINE\PHENIRAMINE MALEATE
     Dosage: 1 IN 1, PRN
     Route: 047
     Dates: start: 20190515
  24. BIOTIN [Concomitant]
     Active Substance: BIOTIN
     Dosage: UNK
     Route: 048
     Dates: start: 20190502, end: 20190709
  25. SUNSCREEN [Concomitant]
     Active Substance: HOMOSALATE\OCTINOXATE\OCTISALATE\OXYBENZONE\TITANIUM DIOXIDE
     Dosage: UNKNOWN (1 IN 1 AS REQUIRED)
     Route: 061
     Dates: start: 20190505
  26. LANTUS [Concomitant]
     Active Substance: INSULIN GLARGINE
     Dosage: 100 UNIT/ML 8 UNITS (1 IN 1 D)
     Route: 058
     Dates: start: 20190606
  27. XYZAL [Concomitant]
     Active Substance: LEVOCETIRIZINE DIHYDROCHLORIDE
     Dosage: 1 DF, 4 IN 1 D
     Route: 048
     Dates: start: 20190620
  28. LEXAPRO [Concomitant]
     Active Substance: ESCITALOPRAM OXALATE
     Dosage: 10 MG, QD
     Route: 048
     Dates: start: 1999
  29. NIRAPARIB [Suspect]
     Active Substance: NIRAPARIB
     Dosage: 200 MG, ON DAYS 1-28 OF EACH 28-DAY CYCLE
     Route: 048
     Dates: start: 20190501
  30. BENADRYL [Concomitant]
     Active Substance: DIPHENHYDRAMINE HYDROCHLORIDE
     Dosage: UNK
     Route: 048
     Dates: start: 20190517, end: 20190612
  31. NOVOLOG [Concomitant]
     Active Substance: INSULIN ASPART
     Dosage: 100 UNITS/ML
     Route: 058
     Dates: start: 20190627

REACTIONS (2)
  - Rash [Recovered/Resolved]
  - Hyperglycaemia [Not Recovered/Not Resolved]

NARRATIVE: CASE EVENT DATE: 20190624
